FAERS Safety Report 5158557-1 (Version None)
Quarter: 2006Q4

REPORT INFORMATION
  Report Type: 
  Country: None (occurrence: None)
  Receive Date: 20061117
  Receipt Date: 20061106
  Transmission Date: 20070319
  Serious: Yes (Life-Threatening, Hospitalization, Other)
  Sender: FDA-Public Use
  Company Number: DEWYE331625OCT06

PATIENT
  Age: 68 Year
  Sex: Female

DRUGS (6)
  1. VENLAFAXINE HCL EXTENDED-RELEASE [Suspect]
     Indication: APATHY
     Dosage: 75 MG PER DAY
     Route: 048
     Dates: start: 20061011, end: 20061014
  2. VENLAFAXINE HCL EXTENDED-RELEASE [Suspect]
     Indication: ASTHENIA
     Dosage: 75 MG PER DAY
     Route: 048
     Dates: start: 20061011, end: 20061014
  3. VENLAFAXINE HCL EXTENDED-RELEASE [Suspect]
     Indication: PAIN
     Dosage: 75 MG PER DAY
     Route: 048
     Dates: start: 20061011, end: 20061014
  4. BUPRENORPHINE HCL [Suspect]
     Indication: PAIN
     Dosage: HALF A PLASTER OF 35 UG/H, ONE PLASTER OF 35UG/H, HALF A PLASTER OF 35 UG/H
     Route: 062
     Dates: start: 20061006, end: 20061010
  5. BUPRENORPHINE HCL [Suspect]
     Indication: PAIN
     Dosage: HALF A PLASTER OF 35 UG/H, ONE PLASTER OF 35UG/H, HALF A PLASTER OF 35 UG/H
     Route: 062
     Dates: start: 20061010, end: 20061013
  6. BUPRENORPHINE HCL [Suspect]
     Indication: PAIN
     Dosage: HALF A PLASTER OF 35 UG/H, ONE PLASTER OF 35UG/H, HALF A PLASTER OF 35 UG/H
     Route: 062
     Dates: start: 20061013, end: 20061014

REACTIONS (16)
  - APATHY [None]
  - BLOOD ALKALINE PHOSPHATASE INCREASED [None]
  - BLOOD CHOLESTEROL INCREASED [None]
  - BLOOD CREATINE PHOSPHOKINASE INCREASED [None]
  - BLOOD GLUCOSE DECREASED [None]
  - BLOOD POTASSIUM INCREASED [None]
  - BLOOD THYROID STIMULATING HORMONE INCREASED [None]
  - BLOOD UREA INCREASED [None]
  - COMA [None]
  - DEHYDRATION [None]
  - HYPONATRAEMIA [None]
  - INAPPROPRIATE AFFECT [None]
  - MEAN CELL VOLUME INCREASED [None]
  - OPIATES POSITIVE [None]
  - SUPRAVENTRICULAR EXTRASYSTOLES [None]
  - VASCULAR ENCEPHALOPATHY [None]
